FAERS Safety Report 4910525-8 (Version None)
Quarter: 2006Q1

REPORT INFORMATION
  Report Type: 
  Country: None (occurrence: None)
  Receive Date: 20060214
  Receipt Date: 20060203
  Transmission Date: 20060701
  Serious: Yes (Other)
  Sender: FDA-Public Use
  Company Number: US-ROCHE-435234

PATIENT
  Age: 34 Year
  Sex: Female

DRUGS (2)
  1. PEGASYS [Suspect]
     Route: 065
     Dates: start: 20060110
  2. COPEGUS [Suspect]
     Route: 065
     Dates: start: 20060110

REACTIONS (9)
  - ANOREXIA [None]
  - CONTUSION [None]
  - DIARRHOEA [None]
  - FATIGUE [None]
  - INJECTION SITE RASH [None]
  - INSOMNIA [None]
  - NAUSEA [None]
  - NEPHROLITHIASIS [None]
  - VOMITING [None]
